FAERS Safety Report 6817709-2 (Version None)
Quarter: 2010Q3

REPORT INFORMATION
  Report Type: 
  Country: None (occurrence: None)
  Receive Date: 20100706
  Receipt Date: 20100629
  Transmission Date: 20110219
  Serious: Yes (Other)
  Sender: FDA-Public Use
  Company Number: US-PFIZER INC-2010081646

PATIENT
  Sex: Female
  Weight: 100 kg

DRUGS (9)
  1. GENOTROPIN [Suspect]
     Indication: HYPOPITUITARISM
     Dosage: 0.2 MG, 1X/DAY
     Route: 058
     Dates: start: 20100601, end: 20100601
  2. LEVOTHYROXINE SODIUM [Concomitant]
     Dosage: UNK
  3. FAMOTIDINE [Concomitant]
     Dosage: UNK
  4. PREDNISONE [Concomitant]
     Dosage: UNK
  5. DESMOPRESSIN ACETATE [Concomitant]
     Dosage: UNK
  6. VITAMIN D [Concomitant]
     Dosage: UNK
  7. VITAMIN B [Concomitant]
     Dosage: UNK
  8. HYDROCHLOROTHIAZIDE [Concomitant]
     Dosage: UNK
  9. ATIVAN [Concomitant]
     Dosage: UNK

REACTIONS (2)
  - HYPERSENSITIVITY [None]
  - PRURITUS [None]
